FAERS Safety Report 11604202 (Version 1)
Quarter: 2015Q4

REPORT INFORMATION
  Report Type: Spontaneous
  Country: FR (occurrence: FR)
  Receive Date: 20151007
  Receipt Date: 20151007
  Transmission Date: 20160304
  Serious: Yes (Death)
  Sender: FDA-Public Use
  Company Number: FR-ROCHE-1642712

PATIENT
  Age: 68 Year
  Sex: Male

DRUGS (2)
  1. MABTHERA [Suspect]
     Active Substance: RITUXIMAB
     Indication: POLYCHONDRITIS
     Route: 065
     Dates: start: 200911, end: 2009
  2. MABTHERA [Suspect]
     Active Substance: RITUXIMAB
     Route: 065
     Dates: start: 201104, end: 201104

REACTIONS (1)
  - Oesophageal squamous cell carcinoma [Fatal]

NARRATIVE: CASE EVENT DATE: 201402
